FAERS Safety Report 17874377 (Version 1)
Quarter: 2020Q2

REPORT INFORMATION
  Report Type: Spontaneous
  Country: ES (occurrence: ES)
  Receive Date: 20200609
  Receipt Date: 20200609
  Transmission Date: 20200714
  Serious: Yes (Other)
  Sender: FDA-Public Use
  Company Number: ES-TEVA-2020-ES-1245955

PATIENT
  Age: 75 Year
  Sex: Female

DRUGS (7)
  1. OSVICAL D 600 MG/400 UI GRANULADO EFERVESCENTE , 60 SOBRES [Concomitant]
     Dosage: 1 DOSAGE FORM
     Route: 048
     Dates: start: 20180827
  2. LUMIGAN [Concomitant]
     Active Substance: BIMATOPROST
     Dosage: 1GTT
     Route: 047
     Dates: start: 20180614
  3. METFORMINA (1359A) [Concomitant]
     Active Substance: METFORMIN HYDROCHLORIDE
     Dosage: 850MG
     Route: 048
     Dates: start: 20120320
  4. ENALAPRIL (2142A) [Concomitant]
     Active Substance: ENALAPRIL
     Dosage: 20MG
     Route: 048
  5. PARACETAMOL (12A) [Concomitant]
     Active Substance: ACETAMINOPHEN
     Dosage: 1G
     Route: 048
     Dates: start: 20180927
  6. ANASTROZOL (2729A) [Suspect]
     Active Substance: ANASTROZOLE
     Indication: BREAST CANCER
     Dosage: 1MG
     Route: 048
     Dates: start: 20180827, end: 20181130
  7. AMLODIPINO (2503A) [Concomitant]
     Active Substance: AMLODIPINE BESYLATE
     Dosage: 5MG
     Route: 048
     Dates: start: 20171128

REACTIONS (1)
  - Musculoskeletal pain [Recovered/Resolved]

NARRATIVE: CASE EVENT DATE: 20180920
